FAERS Safety Report 4845543-1 (Version None)
Quarter: 2005Q4

REPORT INFORMATION
  Report Type: 
  Country: None (occurrence: None)
  Receive Date: 20051201
  Receipt Date: 20051116
  Transmission Date: 20060501
  Serious: Yes (Death, Hospitalization)
  Sender: FDA-Public Use
  Company Number: US016175

PATIENT
  Age: 44 Year
  Sex: Female

DRUGS (1)
  1. FENTANYL (MANUFACTURER UNKNOWN) [Suspect]

REACTIONS (6)
  - ANOXIC ENCEPHALOPATHY [None]
  - CARDIO-RESPIRATORY ARREST [None]
  - DRUG ABUSER [None]
  - DRUG INEFFECTIVE [None]
  - OVERDOSE [None]
  - SIMPLE PARTIAL SEIZURES [None]
